FAERS Safety Report 16366589 (Version 1)
Quarter: 2019Q3

REPORT INFORMATION
  Report Type: Spontaneous
  Country: US (occurrence: US)
  Receive Date: 20190528
  Receipt Date: 20190528
  Transmission Date: 20191004
  Serious: Yes (Death, Life-Threatening, Hospitalization, Disabling)
  Sender: FDA-Public Use
  Company Number: None

PATIENT
  Age: 79 Year
  Sex: Female
  Weight: 95 kg

DRUGS (2)
  1. PALBOCICLIB [Suspect]
     Active Substance: PALBOCICLIB
     Indication: BREAST CANCER METASTATIC
     Route: 048
     Dates: start: 20190207, end: 20190227
  2. PALBOCICLIB [Suspect]
     Active Substance: PALBOCICLIB
     Indication: BREAST CANCER METASTATIC
     Route: 048
     Dates: start: 20190307, end: 20190327

REACTIONS (10)
  - Productive cough [None]
  - Hepatic failure [None]
  - Platelet transfusion [None]
  - Renal impairment [None]
  - Coagulopathy [None]
  - Chills [None]
  - Aphasia [None]
  - Sepsis [None]
  - Mental status changes [None]
  - Pyrexia [None]

NARRATIVE: CASE EVENT DATE: 20190403
